FAERS Safety Report 18218747 (Version 1)
Quarter: 2020Q3

REPORT INFORMATION
  Report Type: Spontaneous
  Country: US (occurrence: US)
  Receive Date: 20200901
  Receipt Date: 20200901
  Transmission Date: 20201103
  Serious: Yes (Hospitalization, Other)
  Sender: FDA-Public Use
  Company Number: US-PFIZER INC-2020336717

PATIENT
  Age: 52 Year
  Sex: Female
  Weight: 60 kg

DRUGS (4)
  1. GENTAMICIN SULFATE. [Suspect]
     Active Substance: GENTAMICIN SULFATE
     Indication: PSEUDOMONAS INFECTION
     Dosage: 360 MG, DAILY (EVERY 24 H)
  2. GENTAMICIN SULFATE. [Suspect]
     Active Substance: GENTAMICIN SULFATE
     Dosage: 280 MG, DAILY (EVERY 24 H)
  3. GENTAMICIN SULFATE. [Suspect]
     Active Substance: GENTAMICIN SULFATE
     Dosage: 280 MG, DAILY (EVERY 24 H)
  4. CLAVULANIC ACID\TICARCILLIN [Concomitant]
     Active Substance: CLAVULANIC ACID\TICARCILLIN
     Indication: PSEUDOMONAS INFECTION
     Dosage: 3.1 G, EVERY 4 HRS

REACTIONS (4)
  - Off label use [Unknown]
  - Diverticulitis [Unknown]
  - Ototoxicity [Recovering/Resolving]
  - Product use issue [Unknown]
